FAERS Safety Report 8190750-6 (Version None)
Quarter: 2012Q1

REPORT INFORMATION
  Report Type: 
  Country: None (occurrence: None)
  Receive Date: 20120307
  Receipt Date: 20120302
  Transmission Date: 20120608
  Serious: Yes (Hospitalization, Other)
  Sender: FDA-Public Use
  Company Number: AU-AMGEN-AUSSP2011061152

PATIENT
  Sex: Male
  Weight: 75 kg

DRUGS (1)
  1. NPLATE [Suspect]
     Indication: PRODUCT USED FOR UNKNOWN INDICATION
     Dosage: 500 MUG, QWK
     Dates: end: 20111111

REACTIONS (2)
  - THERAPEUTIC RESPONSE DECREASED [None]
  - MYOCARDIAL INFARCTION [None]
